FAERS Safety Report 21395929 (Version 1)
Quarter: 2022Q3

REPORT INFORMATION
  Report Type: Spontaneous
  Country: US (occurrence: US)
  Receive Date: 20220930
  Receipt Date: 20220930
  Transmission Date: 20221027
  Serious: Yes (Other)
  Sender: FDA-Public Use
  Company Number: US-MLMSERVICE-20220714-3672548-1

PATIENT
  Age: 56 Year
  Sex: Male

DRUGS (2)
  1. LEFLUNOMIDE [Suspect]
     Active Substance: LEFLUNOMIDE
     Indication: Immunosuppressant drug therapy
     Dosage: UNK
  2. PREDNISONE [Suspect]
     Active Substance: PREDNISONE
     Indication: Immunosuppressant drug therapy
     Dosage: UNK

REACTIONS (10)
  - Bronchopulmonary aspergillosis [Unknown]
  - Haemoptysis [Unknown]
  - Dyspnoea [Unknown]
  - Productive cough [Unknown]
  - Epistaxis [Unknown]
  - Wheezing [Unknown]
  - Skin lesion [Unknown]
  - Cyst [Unknown]
  - Lung opacity [Unknown]
  - Coccidioidomycosis [Unknown]
